FAERS Safety Report 5089628-6 (Version None)
Quarter: 2006Q3

REPORT INFORMATION
  Report Type: 
  Country: None (occurrence: None)
  Receive Date: 20060822
  Receipt Date: 20060807
  Transmission Date: 20061208
  Serious: Yes (Hospitalization)
  Sender: FDA-Public Use
  Company Number: US200608002113

PATIENT
  Sex: Male
  Weight: 158.7 kg

DRUGS (1)
  1. OLANZAPINE [Suspect]
     Dosage: 10 MG, 2/D
     Dates: start: 19970101

REACTIONS (7)
  - BLOOD PRESSURE INCREASED [None]
  - DIABETES MELLITUS [None]
  - METABOLIC DISORDER [None]
  - RENAL FAILURE ACUTE [None]
  - RHABDOMYOLYSIS [None]
  - VISION BLURRED [None]
  - WEIGHT INCREASED [None]
